FAERS Safety Report 16000754 (Version 19)
Quarter: 2023Q4

REPORT INFORMATION
  Report Type: Spontaneous
  Country: BR (occurrence: BR)
  Receive Date: 20190225
  Receipt Date: 20231027
  Transmission Date: 20240110
  Serious: Yes (Hospitalization, Other)
  Sender: FDA-Public Use
  Company Number: BR-GLAXOSMITHKLINE-BR2017GSK124085

PATIENT

DRUGS (5)
  1. BENLYSTA [Suspect]
     Active Substance: BELIMUMAB
     Indication: Systemic lupus erythematosus
     Dosage: 800 MG, 2 X 400 MG EVERY 28 DAYS
     Route: 041
     Dates: start: 20170720
  2. BENLYSTA [Suspect]
     Active Substance: BELIMUMAB
     Indication: Systemic lupus erythematosus
  3. CYCLOSPORINE [Concomitant]
     Active Substance: CYCLOSPORINE
     Indication: Product used for unknown indication
     Dosage: UNK
  4. PREDNISONE [Concomitant]
     Active Substance: PREDNISONE
     Indication: Secretion discharge
     Dosage: 10 MG
  5. MYCOPHENOLATE MOFETIL [Concomitant]
     Active Substance: MYCOPHENOLATE MOFETIL
     Indication: Product used for unknown indication
     Dosage: UNK

REACTIONS (19)
  - Urinary tract infection [Unknown]
  - Wisdom teeth removal [Recovered/Resolved]
  - Urinary tract infection [Recovered/Resolved]
  - Pharyngitis [Recovered/Resolved]
  - Weight increased [Recovered/Resolved]
  - Weight decreased [Unknown]
  - Malaise [Unknown]
  - Nervousness [Unknown]
  - Asthenia [Unknown]
  - Headache [Unknown]
  - Abdominal pain upper [Recovered/Resolved]
  - Vomiting [Recovered/Resolved]
  - Malaise [Unknown]
  - Viral infection [Unknown]
  - Underdose [Unknown]
  - Social problem [Unknown]
  - Overdose [Unknown]
  - Product dose omission issue [Unknown]
  - Inappropriate schedule of product administration [Unknown]

NARRATIVE: CASE EVENT DATE: 20180615
